FAERS Safety Report 12480589 (Version 1)
Quarter: 2016Q2

REPORT INFORMATION
  Report Type: Spontaneous
  Country: US (occurrence: None)
  Receive Date: 20160617
  Receipt Date: 20160617
  Transmission Date: 20160815
  Serious: Yes (Other)
  Sender: FDA-Public Use
  Company Number: None

PATIENT
  Age: 56 Year
  Sex: Female
  Weight: 99.79 kg

DRUGS (1)
  1. DULOXETINE GENERIC FOR CYMBALTA [Suspect]
     Active Substance: DULOXETINE
     Indication: FIBROMYALGIA
     Dosage: 2 PILLS DAILY MOUTH
     Route: 048
     Dates: start: 20160404, end: 20160406

REACTIONS (4)
  - Rash generalised [None]
  - Fatigue [None]
  - Stomatitis [None]
  - Dyspnoea [None]

NARRATIVE: CASE EVENT DATE: 20140406
